FAERS Safety Report 11716995 (Version 1)
Quarter: 2015Q4

REPORT INFORMATION
  Report Type: Spontaneous
  Country: FR (occurrence: FR)
  Receive Date: 20151109
  Receipt Date: 20151109
  Transmission Date: 20160304
  Serious: Yes (Hospitalization, Other)
  Sender: FDA-Public Use
  Company Number: FR-ASTRAZENECA-2015SF07903

PATIENT
  Age: 20244 Day
  Sex: Male

DRUGS (7)
  1. XEROQUEL [Suspect]
     Active Substance: QUETIAPINE FUMARATE
     Route: 048
     Dates: start: 201509, end: 201510
  2. LEXOMIL [Suspect]
     Active Substance: BROMAZEPAM
     Route: 048
     Dates: start: 201509, end: 201510
  3. LANSOPRAZOLE. [Concomitant]
     Active Substance: LANSOPRAZOLE
  4. VALIUM [Concomitant]
     Active Substance: DIAZEPAM
  5. ZOLPIDEM [Concomitant]
     Active Substance: ZOLPIDEM\ZOLPIDEM TARTRATE
  6. TERCIAN [Suspect]
     Active Substance: CYAMEMAZINE
     Route: 048
     Dates: start: 201509, end: 201510
  7. PRITOR [Concomitant]
     Active Substance: TELMISARTAN

REACTIONS (5)
  - Inflammation [Unknown]
  - Fall [Unknown]
  - Rhabdomyolysis [Unknown]
  - Adrenal insufficiency [Recovered/Resolved]
  - Intervertebral disc displacement [Unknown]

NARRATIVE: CASE EVENT DATE: 20151005
